FAERS Safety Report 25793839 (Version 1)
Quarter: 2025Q3

REPORT INFORMATION
  Report Type: Report from Study
  Country: PR (occurrence: PR)
  Receive Date: 20250912
  Receipt Date: 20250912
  Transmission Date: 20251020
  Serious: Yes (Hospitalization, Other)
  Sender: ABBVIE
  Company Number: PR-ABBVIE-6454265

PATIENT
  Age: 75 Year
  Sex: Female

DRUGS (1)
  1. HUMIRA [Suspect]
     Active Substance: ADALIMUMAB
     Indication: Psoriatic arthropathy
     Dosage: CITRATE FREE
     Route: 058
     Dates: start: 20241201

REACTIONS (3)
  - Rectal haemorrhage [Recovering/Resolving]
  - Cholecystectomy [Recovering/Resolving]
  - Intestinal mass [Recovering/Resolving]

NARRATIVE: CASE EVENT DATE: 20250101
